FAERS Safety Report 17219944 (Version 2)
Quarter: 2020Q4

REPORT INFORMATION
  Report Type: Spontaneous
  Country: US (occurrence: US)
  Receive Date: 20191231
  Receipt Date: 20201223
  Transmission Date: 20210113
  Serious: No
  Sender: FDA-Public Use
  Company Number: US-SHIRE-US201945302

PATIENT
  Sex: Female
  Weight: 86.17 kg

DRUGS (27)
  1. FAMOTIDINE. [Concomitant]
     Active Substance: FAMOTIDINE
  2. CUVITRU [Suspect]
     Active Substance: HUMAN IMMUNOGLOBULIN G
     Indication: IMMUNODEFICIENCY COMMON VARIABLE
  3. CENTRUM SILVER [ASCORBIC ACID;CALCIUM;MINERALS NOS;RETINOL;TOCOPHERYL [Concomitant]
     Indication: PRODUCT USED FOR UNKNOWN INDICATION
  4. CUVITRU [Suspect]
     Active Substance: HUMAN IMMUNOGLOBULIN G
     Indication: IMMUNODEFICIENCY
     Dosage: 18 GRAM, Q2WEEKS
     Route: 058
     Dates: start: 20201117
  5. PREVACID [Concomitant]
     Active Substance: LANSOPRAZOLE
     Indication: PRODUCT USED FOR UNKNOWN INDICATION
  6. DULERA [Concomitant]
     Active Substance: FORMOTEROL FUMARATE DIHYDRATE\MOMETASONE FUROATE
     Indication: PRODUCT USED FOR UNKNOWN INDICATION
  7. VENTOLINE [SALBUTAMOL] [Concomitant]
     Active Substance: ALBUTEROL SULFATE
     Indication: PRODUCT USED FOR UNKNOWN INDICATION
  8. ASPIRIN (E.C.) [Concomitant]
     Active Substance: ASPIRIN
     Indication: PRODUCT USED FOR UNKNOWN INDICATION
  9. SINGULAIR [Concomitant]
     Active Substance: MONTELUKAST SODIUM
     Indication: PRODUCT USED FOR UNKNOWN INDICATION
  10. SPIRIVA [Concomitant]
     Active Substance: TIOTROPIUM BROMIDE MONOHYDRATE
     Indication: PRODUCT USED FOR UNKNOWN INDICATION
  11. TRELEGY ELLIPTA [Concomitant]
     Active Substance: FLUTICASONE FUROATE\UMECLIDINIUM BROMIDE\VILANTEROL TRIFENATATE
  12. GAMMAGARD LIQUID [Suspect]
     Active Substance: HUMAN IMMUNOGLOBULIN G
     Indication: IMMUNODEFICIENCY COMMON VARIABLE
     Dosage: 35 GRAM, EVERY 4 WK
     Route: 042
     Dates: start: 20120814
  13. FLUBLOK QUADRIVALENT NOS [Concomitant]
     Active Substance: INFLUENZA VIRUS VACCINE
     Indication: PRODUCT USED FOR UNKNOWN INDICATION
  14. DIPHENHYDRAMINE. [Concomitant]
     Active Substance: DIPHENHYDRAMINE
     Indication: PRODUCT USED FOR UNKNOWN INDICATION
  15. SODIUM CHLORIDE. [Concomitant]
     Active Substance: SODIUM CHLORIDE
     Indication: PRODUCT USED FOR UNKNOWN INDICATION
  16. EPINEPHRINE. [Concomitant]
     Active Substance: EPINEPHRINE
     Indication: PRODUCT USED FOR UNKNOWN INDICATION
  17. ADVIL [IBUPROFEN] [Concomitant]
     Active Substance: IBUPROFEN
     Indication: PRODUCT USED FOR UNKNOWN INDICATION
  18. LMX4 [Concomitant]
     Active Substance: LIDOCAINE
  19. GAMMAGARD LIQUID [Suspect]
     Active Substance: HUMAN IMMUNOGLOBULIN G
     Indication: IMMUNODEFICIENCY
  20. BUTALBITAL AND ACETAMINOPHEN [Concomitant]
     Active Substance: ACETAMINOPHEN\BUTALBITAL
     Indication: PRODUCT USED FOR UNKNOWN INDICATION
  21. ACETAMINOPHEN. [Concomitant]
     Active Substance: ACETAMINOPHEN
  22. ZYRTEC [Concomitant]
     Active Substance: CETIRIZINE HYDROCHLORIDE
  23. IPRATROPIUM/ALBUTEROL [Concomitant]
     Active Substance: ALBUTEROL\IPRATROPIUM
     Indication: PRODUCT USED FOR UNKNOWN INDICATION
  24. CRESTOR [Concomitant]
     Active Substance: ROSUVASTATIN CALCIUM
     Indication: PRODUCT USED FOR UNKNOWN INDICATION
  25. PEPCID [Concomitant]
     Active Substance: FAMOTIDINE
     Indication: PRODUCT USED FOR UNKNOWN INDICATION
  26. PANTOPRAZOLE [Concomitant]
     Active Substance: PANTOPRAZOLE
  27. PROAIR HFA [Concomitant]
     Active Substance: ALBUTEROL SULFATE

REACTIONS (3)
  - Nasopharyngitis [Unknown]
  - Dyspnoea [Unknown]
  - Sinusitis [Unknown]
